FAERS Safety Report 4878796-4 (Version None)
Quarter: 2005Q4

REPORT INFORMATION
  Report Type: 
  Country: None (occurrence: None)
  Receive Date: 20051209
  Receipt Date: 20050902
  Transmission Date: 20060501
  Serious: Yes (Other)
  Sender: FDA-Public Use
  Company Number: USA-2003-0010605

PATIENT
  Age: 48 Year
  Sex: Male
  Weight: 101.6 kg

DRUGS (15)
  1. OXYCONTIN [Suspect]
     Indication: PAIN
     Dosage: 40 MG, BID
  2. ADVAIR DISKUS 100/50 [Concomitant]
  3. BEXTRA [Concomitant]
  4. AMITRIPTYLINE HCL [Concomitant]
  5. NEURONTIN [Concomitant]
  6. WELLBUTRIN SR [Concomitant]
  7. ATIVAN [Concomitant]
  8. REMERON [Concomitant]
  9. PAXIL [Concomitant]
  10. LOTRISONE [Concomitant]
  11. GLUCOSAMINE [Concomitant]
  12. LEVSIN [Concomitant]
  13. PROVIGIL [Concomitant]
  14. PERCOCET [Concomitant]
  15. ENDOCET [Concomitant]

REACTIONS (28)
  - ANXIETY [None]
  - ARTHRALGIA [None]
  - DECREASED APPETITE [None]
  - DEPRESSION [None]
  - DRUG DEPENDENCE [None]
  - DRUG INEFFECTIVE [None]
  - DRUG TOLERANCE [None]
  - DRUG WITHDRAWAL SYNDROME [None]
  - EPISTAXIS [None]
  - FATIGUE [None]
  - FEELING COLD [None]
  - HOT FLUSH [None]
  - HYPERHIDROSIS [None]
  - INADEQUATE ANALGESIA [None]
  - INSOMNIA [None]
  - LIBIDO DECREASED [None]
  - MEDICATION ERROR [None]
  - MIGRAINE [None]
  - MUSCLE SPASMS [None]
  - NAUSEA [None]
  - OEDEMA PERIPHERAL [None]
  - PAIN [None]
  - PARONYCHIA [None]
  - PRURITUS [None]
  - SEXUAL DYSFUNCTION [None]
  - STUPOR [None]
  - TINEA INFECTION [None]
  - TREMOR [None]
